FAERS Safety Report 7905367-5 (Version None)
Quarter: 2011Q4

REPORT INFORMATION
  Report Type: 
  Country: None (occurrence: None)
  Receive Date: 20111109
  Receipt Date: 20111108
  Transmission Date: 20120403
  Serious: Yes (Life-Threatening, Hospitalization, Other)
  Sender: FDA-Public Use
  Company Number: MX-ABBOTT-10P-107-0633258-00

PATIENT
  Sex: Female
  Weight: 55 kg

DRUGS (5)
  1. CRESTOR [Concomitant]
     Indication: HYPERTRIGLYCERIDAEMIA
     Dosage: 10 MG, DAILY
     Route: 048
     Dates: start: 20100101
  2. OMEPRAZOLE [Concomitant]
     Indication: PROPHYLAXIS
     Dosage: 20 MG, DAILY
     Route: 048
     Dates: start: 20070101
  3. HUMIRA [Suspect]
     Indication: RHEUMATOID ARTHRITIS
     Route: 058
     Dates: start: 20090723, end: 20100201
  4. ALPRAZOLAM [Concomitant]
     Indication: INSOMNIA
     Dosage: 0.25, DAILY
     Route: 048
     Dates: start: 20070101
  5. ARABA [Concomitant]
     Indication: RHEUMATOID ARTHRITIS
     Dosage: 20 MG, DAILY
     Route: 048
     Dates: start: 20090723, end: 20100304

REACTIONS (12)
  - LIP SWELLING [None]
  - LIP OEDEMA [None]
  - OBSTRUCTIVE AIRWAYS DISORDER [None]
  - CHEILITIS [None]
  - BURNING SENSATION [None]
  - PRURITUS [None]
  - LIP PAIN [None]
  - PAIN [None]
  - BLISTER [None]
  - GLOSSITIS [None]
  - BRONCHIAL HYPERREACTIVITY [None]
  - INFLAMMATION [None]
